FAERS Safety Report 9128526 (Version 1)
Quarter: 2013Q1

REPORT INFORMATION
  Report Type: Spontaneous
  Country: US (occurrence: US)
  Receive Date: 20130228
  Receipt Date: 20130228
  Transmission Date: 20140127
  Serious: No
  Sender: FDA-Public Use
  Company Number: US-GLAXOSMITHKLINE-A1002137A

PATIENT
  Age: 40 Year
  Sex: Female
  Weight: 113 kg

DRUGS (5)
  1. IMITREX [Suspect]
     Indication: MIGRAINE
     Route: 030
     Dates: start: 20120822, end: 20120823
  2. FENTANYL [Concomitant]
     Indication: PAIN
     Route: 030
     Dates: start: 20120820, end: 20120822
  3. PROMETHAZINE [Concomitant]
     Indication: NAUSEA
     Route: 030
     Dates: start: 20120822
  4. TRIMETHOBENZAMIDE [Concomitant]
     Indication: NAUSEA
     Route: 030
     Dates: start: 20120822, end: 20120823
  5. DIPHENHYDRAMINE [Concomitant]
     Route: 030
     Dates: start: 20120822

REACTIONS (2)
  - Incorrect route of drug administration [Unknown]
  - Hypoaesthesia [Unknown]
